FAERS Safety Report 15067678 (Version 3)
Quarter: 2018Q3

REPORT INFORMATION
  Report Type: Spontaneous
  Country: FR (occurrence: FR)
  Receive Date: 20180626
  Receipt Date: 20180711
  Transmission Date: 20181010
  Serious: Yes (Other)
  Sender: FDA-Public Use
  Company Number: FR-PFIZER INC-2018252080

PATIENT

DRUGS (5)
  1. CYTARABINE. [Suspect]
     Active Substance: CYTARABINE
     Indication: B-CELL LYMPHOMA REFRACTORY
     Dosage: 1000 MG/M2, DAILY(MG/M2/D, DAYS 1 AND 2)
     Route: 040
  2. ARACYTINE [Suspect]
     Active Substance: CYTARABINE
     Indication: B-CELL LYMPHOMA REFRACTORY
     Dosage: 1000 MG/M2, DAILY(MG/M2/D, DAYS 1 AND 2)
     Route: 040
  3. RITUXIMAB. [Suspect]
     Active Substance: RITUXIMAB
     Indication: B-CELL LYMPHOMA REFRACTORY
     Dosage: 375 MG/M2, (AT DAY 1)
     Route: 042
  4. DEXAMETHASONE. [Suspect]
     Active Substance: DEXAMETHASONE
     Indication: B-CELL LYMPHOMA REFRACTORY
     Dosage: 40 MG, QD (AT DAYS 1?4)
     Route: 048
  5. VEPESIDE [Suspect]
     Active Substance: ETOPOSIDE
     Indication: B-CELL LYMPHOMA REFRACTORY
     Dosage: 75 MG/M2, DAILY  (MG/M2/D, DAYS 1 TO 3)
     Route: 040

REACTIONS (1)
  - Cerebellar syndrome [Unknown]
